FAERS Safety Report 4767730-3 (Version None)
Quarter: 2005Q3

REPORT INFORMATION
  Report Type: 
  Country: None (occurrence: None)
  Receive Date: 20050912
  Receipt Date: 20050907
  Transmission Date: 20060218
  Serious: Yes (Death)
  Sender: FDA-Public Use
  Company Number: D-A2501023-3818

PATIENT
  Age: 77 Year
  Sex: Female
  Weight: 59.7 kg

DRUGS (4)
  1. DONEPEZIL HCL [Suspect]
     Indication: DEMENTIA ALZHEIMER'S TYPE
     Dosage: SEE IMAGE
     Route: 048
     Dates: start: 20040129, end: 20040315
  2. DONEPEZIL HCL [Suspect]
     Indication: DEMENTIA ALZHEIMER'S TYPE
     Dosage: SEE IMAGE
     Route: 048
     Dates: start: 20040316, end: 20040728
  3. GALANTAMINE (GALANTAMINE) [Concomitant]
  4. ENALAPRIL MALEATE [Concomitant]

REACTIONS (1)
  - CEREBROVASCULAR ACCIDENT [None]
